FAERS Safety Report 6555360-2 (Version None)
Quarter: 2010Q1

REPORT INFORMATION
  Report Type: 
  Country: None (occurrence: None)
  Receive Date: 20100128
  Receipt Date: 20090716
  Transmission Date: 20100710
  Serious: No
  Sender: FDA-Public Use
  Company Number: A0797314A

PATIENT
  Age: 36 Year
  Sex: Female

DRUGS (4)
  1. BUPROPION HYDROCHLORIDE [Suspect]
     Indication: DEPRESSION
     Route: 048
     Dates: start: 20090201
  2. ZOLOFT [Concomitant]
  3. DOXYCYCLINE [Concomitant]
  4. SPIRONOLACTONE [Concomitant]

REACTIONS (2)
  - ANXIETY [None]
  - DRUG INEFFECTIVE [None]
